FAERS Safety Report 23740514 (Version 1)
Quarter: 2024Q2

REPORT INFORMATION
  Report Type: Spontaneous
  Country: NO (occurrence: NO)
  Receive Date: 20240415
  Receipt Date: 20240415
  Transmission Date: 20240716
  Serious: Yes (Hospitalization)
  Sender: FDA-Public Use
  Company Number: None

PATIENT
  Age: 75 Year
  Sex: Female

DRUGS (14)
  1. TRAMADOL [Suspect]
     Active Substance: TRAMADOL\TRAMADOL HYDROCHLORIDE
     Indication: Abdominal pain upper
     Dosage: 1 UP TO 3 TIMES A DAY, TRAMADOL ACTAVIS
     Route: 048
     Dates: start: 20231219, end: 20231229
  2. TRAMADOL [Suspect]
     Active Substance: TRAMADOL\TRAMADOL HYDROCHLORIDE
     Indication: Abdominal pain upper
     Route: 065
  3. AMLODIPINE BESYLATE [Concomitant]
     Active Substance: AMLODIPINE BESYLATE
     Indication: Hypertension
     Dosage: USED FOR MANY YEARS, DISCONTINUED BY THE MP IN JANUARY 2024 DUE TO ORTHOSTATISM.
     Dates: end: 20240126
  4. METOCLOPRAMIDE HYDROCHLORIDE [Suspect]
     Active Substance: METOCLOPRAMIDE HYDROCHLORIDE
     Indication: Nausea
     Route: 065
  5. METOCLOPRAMIDE HYDROCHLORIDE [Suspect]
     Active Substance: METOCLOPRAMIDE HYDROCHLORIDE
     Indication: Nausea
     Dosage: TIME INTERVAL: AS NECESSARY
     Route: 048
     Dates: start: 20240217, end: 20240222
  6. CREON [Concomitant]
     Active Substance: PANCRELIPASE AMYLASE\PANCRELIPASE LIPASE\PANCRELIPASE PROTEASE
     Indication: Product used for unknown indication
     Dosage: TIME INTERVAL: AS NECESSARY: 1 TABLET AFTER EVERY MEAL
     Route: 065
     Dates: start: 20240105, end: 20240206
  7. METOCLOPRAMIDE HYDROCHLORIDE [Suspect]
     Active Substance: METOCLOPRAMIDE HYDROCHLORIDE
     Indication: Nausea
     Dosage: 1 TABLET 2-4 TIMES A DAY
     Route: 048
     Dates: start: 20240105, end: 20240208
  8. METOPROLOL [Concomitant]
     Active Substance: METOPROLOL
     Indication: Hypertension
     Dosage: UNCHANGED DOSAGE FOR MANY YEARS?CONTINUED USE OF MEDICINAL PRODUCT
     Route: 065
  9. ATORVASTATIN XIROMED [Concomitant]
     Indication: Blood cholesterol increased
     Dosage: USED FOR MANY YEARS, DOSE UNCHANGED. WITHDRAWN DURING HOSPITAL STAY IN JANUARY 2024.?CONTINUED US...
     Dates: end: 202401
  10. DIOVAN [Concomitant]
     Active Substance: VALSARTAN
     Indication: Hypertension
     Dosage: USED 80 MG FOR SEVERAL YEARS, DOSAGE INCREASED T 160 MG IN NOVEMBER 2023?CONTINUED USE OF MEDICIN...
     Route: 065
     Dates: end: 202311
  11. DIOVAN [Concomitant]
     Active Substance: VALSARTAN
     Indication: Hypertension
     Dosage: USED 80 MG FOR SEVERAL YEARS, DOSAGE INCREASED T 160 MG IN NOVEMBER 2023?CONTINUED USE OF MEDICIN...
     Route: 065
     Dates: start: 202311
  12. PLAVIX [Concomitant]
     Active Substance: CLOPIDOGREL BISULFATE
     Indication: Product used for unknown indication
     Dosage: STROKE IN 2011?CONTINUED USE OF MEDICINAL PRODUCT
     Route: 065
  13. TRAMADOL HYDROCHLORIDE [Suspect]
     Active Substance: TRAMADOL HYDROCHLORIDE
     Indication: Abdominal pain upper
     Dosage: 1 X INNTIL 2
     Route: 048
     Dates: start: 20231229, end: 20240207
  14. PANTOPRAZOLE [Concomitant]
     Active Substance: PANTOPRAZOLE
     Indication: Abdominal discomfort
     Route: 065
     Dates: start: 20231219

REACTIONS (3)
  - Confusional state [Recovering/Resolving]
  - Fatigue [Recovering/Resolving]
  - Tremor [Recovering/Resolving]

NARRATIVE: CASE EVENT DATE: 20231201
